FAERS Safety Report 9692404 (Version 10)
Quarter: 2014Q3

REPORT INFORMATION
  Report Type: Spontaneous
  Country: US (occurrence: US)
  Receive Date: 20131118
  Receipt Date: 20140701
  Transmission Date: 20150326
  Serious: Yes (Hospitalization, Other)
  Sender: FDA-Public Use
  Company Number: US-PFIZER INC-2013326732

PATIENT
  Age: 62 Year
  Sex: Female

DRUGS (2)
  1. LYRICA [Suspect]
     Active Substance: PREGABALIN
     Indication: DIABETIC NEUROPATHY
     Dosage: 75 MG, 3X/DAY
     Route: 048
     Dates: start: 201312
  2. LYRICA [Suspect]
     Active Substance: PREGABALIN
     Dosage: 150 MG, 3X/DAY
     Route: 048

REACTIONS (20)
  - Pain [Unknown]
  - Diarrhoea [Unknown]
  - Blood glucose increased [Unknown]
  - Stress [Unknown]
  - Fear [Unknown]
  - Drug ineffective [Unknown]
  - Dry mouth [Unknown]
  - Systemic lupus erythematosus [Unknown]
  - Tremor [Unknown]
  - Breast cancer [Unknown]
  - Blood glucose decreased [Unknown]
  - H1N1 influenza [Unknown]
  - Mobility decreased [Unknown]
  - Abdominal discomfort [Recovered/Resolved]
  - Hallucination [Unknown]
  - Headache [Unknown]
  - Drug withdrawal syndrome [Unknown]
  - Pain in extremity [Unknown]
  - Oropharyngeal pain [Unknown]
  - Anxiety [Unknown]

NARRATIVE: CASE EVENT DATE: 20140213
